FAERS Safety Report 9696612 (Version 1)
Quarter: 2013Q4

REPORT INFORMATION
  Report Type: Spontaneous
  Country: US (occurrence: US)
  Receive Date: 20131119
  Receipt Date: 20131119
  Transmission Date: 20140711
  Serious: No
  Sender: FDA-Public Use
  Company Number: US-TEVA-443321USA

PATIENT
  Sex: Female

DRUGS (1)
  1. PROAIR HFA [Suspect]
     Indication: ASTHMA
     Dates: start: 201309

REACTIONS (5)
  - Oropharyngeal pain [Unknown]
  - Sinus disorder [Unknown]
  - Multiple allergies [Unknown]
  - Headache [Unknown]
  - Intentional drug misuse [Unknown]
